FAERS Safety Report 12309304 (Version 2)
Quarter: 2016Q2

REPORT INFORMATION
  Report Type: Spontaneous
  Country: GB (occurrence: GB)
  Receive Date: 20160427
  Receipt Date: 20160520
  Transmission Date: 20160815
  Serious: Yes (Other)
  Sender: FDA-Public Use
  Company Number: GB-TEVA-654036ACC

PATIENT
  Age: 83 Year
  Sex: Female

DRUGS (2)
  1. ORAMORPH [Concomitant]
     Active Substance: MORPHINE SULFATE
  2. FUROSEMIDE. [Suspect]
     Active Substance: FUROSEMIDE
     Indication: CARDIAC FAILURE CONGESTIVE
     Route: 048
     Dates: start: 20140430, end: 20160322

REACTIONS (1)
  - Acute kidney injury [Not Recovered/Not Resolved]
